FAERS Safety Report 4586746-3 (Version None)
Quarter: 2005Q1

REPORT INFORMATION
  Report Type: 
  Country: None (occurrence: None)
  Receive Date: 20050217
  Receipt Date: 20050217
  Transmission Date: 20050727
  Serious: Yes (Hospitalization)
  Sender: FDA-Public Use
  Company Number: None

PATIENT

DRUGS (1)
  1. CELEBREX [Suspect]

REACTIONS (4)
  - CEREBROVASCULAR ACCIDENT [None]
  - DYSGRAPHIA [None]
  - READING DISORDER [None]
  - VISUAL ACUITY REDUCED [None]
